FAERS Safety Report 15699977 (Version 1)
Quarter: 2018Q4

REPORT INFORMATION
  Report Type: Spontaneous
  Country: FR (occurrence: FR)
  Receive Date: 20181207
  Receipt Date: 20181207
  Transmission Date: 20190205
  Serious: Yes (Death)
  Sender: FDA-Public Use
  Company Number: FR-PFIZER INC-2018500892

PATIENT
  Age: 64 Year
  Sex: Female
  Weight: 51 kg

DRUGS (1)
  1. LYRICA [Suspect]
     Active Substance: PREGABALIN
     Indication: PAIN
     Dosage: 4 DF (25MG), 1X/DAY
     Route: 048
     Dates: start: 20170818, end: 20170819

REACTIONS (2)
  - Death [Fatal]
  - Tremor [Recovered/Resolved]

NARRATIVE: CASE EVENT DATE: 20170818
